FAERS Safety Report 9335351 (Version 1)
Quarter: 2013Q2

REPORT INFORMATION
  Report Type: Report from Study
  Country: JP (occurrence: JP)
  Receive Date: 20130606
  Receipt Date: 20130606
  Transmission Date: 20140414
  Serious: Yes (Other)
  Sender: FDA-Public Use
  Company Number: PHHY2013JP056670

PATIENT
  Age: 60 Year
  Sex: Female
  Weight: 52 kg

DRUGS (6)
  1. AFINITOR [Suspect]
     Indication: METASTATIC RENAL CELL CARCINOMA
     Dosage: 10 MG, DAILY
     Route: 048
     Dates: start: 20110510, end: 20110623
  2. AFINITOR [Suspect]
     Dosage: 5 MG, DAILY
     Route: 048
     Dates: start: 20110708, end: 20110825
  3. AFINITOR [Suspect]
     Dosage: 10 MG, DAILY
     Route: 048
     Dates: start: 20110826, end: 20111020
  4. CONIEL [Concomitant]
     Dosage: 8 MG, UNK
     Route: 048
     Dates: start: 20110510
  5. FORSENID [Concomitant]
     Dosage: 24 MG, UNK
     Route: 048
     Dates: start: 20110510, end: 20110603
  6. AZUNOL//SODIUM GUALENATE [Concomitant]
     Indication: PROPHYLAXIS
     Dates: start: 20110510, end: 20111031

REACTIONS (10)
  - C-reactive protein increased [Recovered/Resolved]
  - Neutropenia [Recovered/Resolved]
  - Hyperglycaemia [Recovered/Resolved]
  - Eczema [Recovered/Resolved]
  - White blood cell count decreased [Unknown]
  - Pruritus [Recovered/Resolved]
  - Miliaria [Recovered/Resolved]
  - Stomatitis [Recovered/Resolved]
  - Metastatic renal cell carcinoma [Not Recovered/Not Resolved]
  - Malignant neoplasm progression [Not Recovered/Not Resolved]
